FAERS Safety Report 8351690 (Version 3)
Quarter: 2014Q3

REPORT INFORMATION
  Report Type: Spontaneous
  Country: US (occurrence: US)
  Receive Date: 20120124
  Receipt Date: 20140905
  Transmission Date: 20150326
  Serious: Yes (Hospitalization)
  Sender: FDA-Public Use
  Company Number: US-GLAXOSMITHKLINE-A0962504A

PATIENT
  Sex: Male

DRUGS (1)
  1. AVANDARYL [Suspect]
     Active Substance: GLIMEPIRIDE\ROSIGLITAZONE MALEATE
     Indication: DIABETES MELLITUS
     Route: 048
     Dates: start: 20090709, end: 20110408

REACTIONS (5)
  - Coronary artery disease [Unknown]
  - Dyspnoea [Unknown]
  - Stent placement [Unknown]
  - Myocardial infarction [Not Recovered/Not Resolved]
  - Angina pectoris [Unknown]
